FAERS Safety Report 6057168-3 (Version None)
Quarter: 2009Q1

REPORT INFORMATION
  Report Type: 
  Country: None (occurrence: None)
  Receive Date: 20090129
  Receipt Date: 20080108
  Transmission Date: 20090719
  Serious: No
  Sender: FDA-Public Use
  Company Number: A0702781A

PATIENT
  Age: 33 Year
  Sex: Female

DRUGS (4)
  1. WELLBUTRIN [Suspect]
     Indication: DEPRESSION
     Dates: start: 20040101
  2. LEXAPRO [Suspect]
     Indication: DEPRESSION
     Route: 065
     Dates: start: 20040101
  3. AMBIEN [Suspect]
     Indication: INSOMNIA
     Route: 065
  4. UNSPECIFIED MEDICATION [Suspect]
     Route: 065

REACTIONS (3)
  - ANGER [None]
  - DRUG INTERACTION [None]
  - PSYCHOMOTOR HYPERACTIVITY [None]
